FAERS Safety Report 7098127-1 (Version None)
Quarter: 2010Q4

REPORT INFORMATION
  Report Type: 
  Country: None (occurrence: None)
  Receive Date: 20101105
  Receipt Date: 20101029
  Transmission Date: 20110411
  Serious: Yes (Hospitalization)
  Sender: FDA-Public Use
  Company Number: 1000017131

PATIENT
  Age: 52 Year
  Sex: Female

DRUGS (3)
  1. LEXAPRO [Suspect]
     Indication: MIGRAINE
     Dosage: 10 MG (10 MG,1 IN 1 D),ORAL
     Route: 048
     Dates: start: 20080101, end: 20100901
  2. LEXAPRO [Suspect]
     Indication: MIGRAINE
     Dosage: 15 MG (15 MG,1 IN 1 D),ORAL
     Route: 048
     Dates: start: 20100901, end: 20101008
  3. IMITREX (SUMATRIPTAN SUCCINATE) (SUMATRIPTAN SUCCINATE) [Concomitant]

REACTIONS (1)
  - SPHINCTER OF ODDI DYSFUNCTION [None]
